FAERS Safety Report 5131839-5 (Version None)
Quarter: 2006Q4

REPORT INFORMATION
  Report Type: 
  Country: None (occurrence: None)
  Receive Date: 20061016
  Receipt Date: 20061006
  Transmission Date: 20070319
  Serious: Yes (Other)
  Sender: FDA-Public Use
  Company Number: 2006123289

PATIENT
  Sex: Male
  Weight: 83.9154 kg

DRUGS (2)
  1. LIPITOR [Suspect]
     Indication: BLOOD CHOLESTEROL INCREASED
     Dosage: 40 MG (40 MG, 1 IN 1 D)
  2. ZETIA [Concomitant]

REACTIONS (3)
  - AORTIC ANEURYSM [None]
  - CARDIAC OPERATION [None]
  - CORONARY ARTERY BYPASS [None]
